FAERS Safety Report 16124242 (Version 3)
Quarter: 2019Q2

REPORT INFORMATION
  Report Type: Spontaneous
  Country: US (occurrence: US)
  Receive Date: 20190327
  Receipt Date: 20190613
  Transmission Date: 20190711
  Serious: Yes (Hospitalization)
  Sender: FDA-Public Use
  Company Number: US-VERTEX PHARMACEUTICALS-2019-002645

PATIENT
  Age: 17 Year
  Sex: Female

DRUGS (10)
  1. ORKAMBI [Suspect]
     Active Substance: IVACAFTOR\LUMACAFTOR
     Indication: CYSTIC FIBROSIS
     Dosage: 2 DOSAGE FORM, BID
     Route: 048
     Dates: start: 20150806
  2. ALBUTEROL                          /00139501/ [Concomitant]
     Active Substance: ALBUTEROL
  3. PANCRECARB [Concomitant]
  4. PULMOZYME [Concomitant]
     Active Substance: DORNASE ALFA
  5. INSULIN [Concomitant]
     Active Substance: INSULIN NOS
  6. TOBI [Concomitant]
     Active Substance: TOBRAMYCIN
  7. FLOVENT [Concomitant]
     Active Substance: FLUTICASONE PROPIONATE
  8. LORATADINE. [Concomitant]
     Active Substance: LORATADINE
  9. ULTRACET [Concomitant]
     Active Substance: ACETAMINOPHEN\TRAMADOL HYDROCHLORIDE
  10. ZANTAC [Concomitant]
     Active Substance: RANITIDINE HYDROCHLORIDE

REACTIONS (1)
  - Sinusitis [Unknown]

NARRATIVE: CASE EVENT DATE: 20190213
